FAERS Safety Report 14800111 (Version 1)
Quarter: 2018Q2

REPORT INFORMATION
  Report Type: Spontaneous
  Country: NL (occurrence: NL)
  Receive Date: 20180424
  Receipt Date: 20180424
  Transmission Date: 20180711
  Serious: Yes (Life-Threatening)
  Sender: FDA-Public Use
  Company Number: PHHY2018NL064366

PATIENT

DRUGS (5)
  1. FILGRASTIM [Suspect]
     Active Substance: FILGRASTIM
     Indication: PRODUCT USED FOR UNKNOWN INDICATION
     Dosage: 5-10 MG/KG, UNK
     Route: 058
  2. CYCLOSPORIN [Concomitant]
     Active Substance: CYCLOSPORINE
     Indication: PRODUCT USED FOR UNKNOWN INDICATION
     Dosage: 6 MG/KG, OVER 2 H ON DAY 1
     Route: 042
  3. ARA-C [Concomitant]
     Active Substance: CYTARABINE
     Indication: PRODUCT USED FOR UNKNOWN INDICATION
     Dosage: 500 MG/M2, BID
     Route: 042
  4. CYCLOSPORIN [Concomitant]
     Active Substance: CYCLOSPORINE
     Dosage: 16 MG/KG, QD (ON DAYS 1-6)
     Route: 041
  5. IDARUBICIN [Concomitant]
     Active Substance: IDARUBICIN
     Indication: PRODUCT USED FOR UNKNOWN INDICATION
     Dosage: 12 MG/M2 ON DAY 1, 3
     Route: 042

REACTIONS (1)
  - Bone pain [Unknown]
